FAERS Safety Report 5551466-5 (Version None)
Quarter: 2007Q4

REPORT INFORMATION
  Report Type: 
  Country: None (occurrence: None)
  Receive Date: 20071128
  Receipt Date: 20070921
  Transmission Date: 20080405
  Serious: Yes (Other)
  Sender: FDA-Public Use
  Company Number: 2007059953

PATIENT
  Age: 75 Year
  Sex: Female
  Weight: 67.1 kg

DRUGS (7)
  1. LIPITOR [Suspect]
     Indication: BLOOD CHOLESTEROL INCREASED
     Dosage: 10 MG
     Dates: end: 20070601
  2. ACTONEL [Concomitant]
  3. TENORMIN [Concomitant]
  4. OCUVITE PRESERVISION (ASCORBIC ACID, COPPER, RETINOL, TOCOPHEROL, ZINC [Concomitant]
  5. LUTEIN (XANTHOPHYLL) [Concomitant]
  6. MULTI-VITAMINS [Concomitant]
  7. CELEBREX [Concomitant]

REACTIONS (1)
  - HYPOAESTHESIA [None]
